FAERS Safety Report 23967316 (Version 1)
Quarter: 2024Q2

REPORT INFORMATION
  Report Type: Spontaneous
  Country: JP (occurrence: JP)
  Receive Date: 20240612
  Receipt Date: 20240612
  Transmission Date: 20240715
  Serious: Yes (Other)
  Sender: FDA-Public Use
  Company Number: JP-PFIZER INC-PV202400075350

PATIENT
  Age: 29 Year
  Sex: Female

DRUGS (2)
  1. LITFULO [Suspect]
     Active Substance: RITLECITINIB TOSYLATE
     Dosage: UNK
  2. DIPHENCYPRONE [Suspect]
     Active Substance: DIPHENCYPRONE
     Dosage: UNK

REACTIONS (1)
  - Erythema multiforme [Unknown]
